FAERS Safety Report 16821560 (Version 2)
Quarter: 2019Q3

REPORT INFORMATION
  Report Type: Spontaneous
  Country: US (occurrence: US)
  Receive Date: 20190918
  Receipt Date: 20190923
  Transmission Date: 20191005
  Serious: Yes (Other)
  Sender: FDA-Public Use
  Company Number: US-PFIZER INC-2019388611

PATIENT
  Age: 40 Year
  Sex: Female
  Weight: 49 kg

DRUGS (3)
  1. LYRICA [Suspect]
     Active Substance: PREGABALIN
     Indication: POLYNEUROPATHY
     Dosage: 75 MG, 2X/DAY
     Route: 048
     Dates: start: 20190530, end: 2019
  2. LYRICA [Suspect]
     Active Substance: PREGABALIN
     Indication: EHLERS-DANLOS SYNDROME
     Dosage: 75 MG, 2X/DAY
     Route: 048
     Dates: start: 20180611
  3. LYRICA [Suspect]
     Active Substance: PREGABALIN
     Indication: NEUROPATHY PERIPHERAL
     Dosage: 150 MG, 2X/DAY
     Route: 048
     Dates: start: 2019, end: 201909

REACTIONS (1)
  - Drug withdrawal syndrome [Not Recovered/Not Resolved]

NARRATIVE: CASE EVENT DATE: 201909
